FAERS Safety Report 10761383 (Version 5)
Quarter: 2021Q4

REPORT INFORMATION
  Report Type: Report from Study
  Country: US (occurrence: US)
  Receive Date: 20150204
  Receipt Date: 20211119
  Transmission Date: 20220303
  Serious: Yes (Death, Life-Threatening)
  Sender: FDA-Public Use
  Company Number: US-SA-2015SA011753

PATIENT
  Age: 74 Year
  Sex: Female
  Weight: 58 kg

DRUGS (3)
  1. CLOFARABINE [Suspect]
     Active Substance: CLOFARABINE
     Indication: Acute myeloid leukaemia
     Dosage: UNK UNK,UNK
     Route: 065
     Dates: start: 20150108, end: 20150112
  2. OXAZEPAM [Concomitant]
     Active Substance: OXAZEPAM
     Dosage: 10 MG,QD
     Route: 048
  3. ESCITALOPRAM [Concomitant]
     Active Substance: ESCITALOPRAM OXALATE
     Dosage: 10 MG,QD
     Route: 048

REACTIONS (2)
  - Brain herniation [Fatal]
  - Lymphatic disorder [Unknown]

NARRATIVE: CASE EVENT DATE: 20150120
